FAERS Safety Report 8137122-8 (Version None)
Quarter: 2012Q1

REPORT INFORMATION
  Report Type: 
  Country: None (occurrence: None)
  Receive Date: 20120215
  Receipt Date: 20120206
  Transmission Date: 20120608
  Serious: No
  Sender: FDA-Public Use
  Company Number: US-BIOGENIDEC-2012BI004770

PATIENT
  Age: 73 Year
  Sex: Female

DRUGS (3)
  1. AVONEX [Suspect]
     Route: 030
     Dates: start: 20060101
  2. AVONEX [Suspect]
     Route: 030
     Dates: start: 20030101, end: 20050101
  3. AVONEX [Suspect]
     Indication: MULTIPLE SCLEROSIS
     Route: 030
     Dates: start: 19960101, end: 20030101

REACTIONS (3)
  - SINUSITIS [None]
  - NASOPHARYNGITIS [None]
  - CERUMEN IMPACTION [None]
